FAERS Safety Report 12737489 (Version 2)
Quarter: 2016Q4

REPORT INFORMATION
  Report Type: Spontaneous
  Country: US (occurrence: US)
  Receive Date: 20160912
  Receipt Date: 20161026
  Transmission Date: 20170207
  Serious: No
  Sender: FDA-Public Use
  Company Number: US-G+W LABS-GW2016US000111

PATIENT

DRUGS (1)
  1. CLOBETASOL PROPIONATE. [Suspect]
     Active Substance: CLOBETASOL PROPIONATE
     Indication: PRURITUS
     Dosage: 0.05 %, UNK
     Route: 061
     Dates: start: 201608, end: 201609

REACTIONS (4)
  - Insomnia [Unknown]
  - Drug ineffective [Unknown]
  - Pruritus [Unknown]
  - Adverse drug reaction [Unknown]
